FAERS Safety Report 10052798 (Version 2)
Quarter: 2014Q3

REPORT INFORMATION
  Report Type: Spontaneous
  Country: IT (occurrence: None)
  Receive Date: 20140331
  Receipt Date: 20140721
  Transmission Date: 20150326
  Serious: Yes (Hospitalization)
  Sender: FDA-Public Use
  Company Number: AUR-APL-2014-03941

PATIENT
  Age: 89 Year
  Sex: Female

DRUGS (7)
  1. LACTULOSE (LACTULOSE) [Concomitant]
     Active Substance: LACTULOSE
  2. DEURSIL (URSODEOXYCHOLIC ACID) [Concomitant]
  3. CODEINE W/PARACETAMOL (LENOLTEC WITH CODEINE NO 1) [Concomitant]
  4. ESOMEPRAZOLE (ESOMEPRAZOLE) [Concomitant]
     Active Substance: ESOMEPRAZOLE
  5. RISPERIDONE. [Suspect]
     Active Substance: RISPERIDONE
     Indication: PRODUCT USED FOR UNKNOWN INDICATION
     Dosage: 1 DF, TOTAL, ORAL
     Route: 048
     Dates: start: 20140306, end: 20140306
  6. TALOFEN [Suspect]
     Active Substance: PROMAZINE HYDROCHLORIDE
     Indication: PRODUCT USED FOR UNKNOWN INDICATION
     Dosage: 1 DF, TOTAL
     Route: 048
     Dates: start: 20140306, end: 20140306
  7. CARDIOASPIRIN (ACETYLSALICYLIC ACID) [Concomitant]
     Active Substance: ASPIRIN

REACTIONS (2)
  - Sopor [None]
  - Iatrogenic injury [None]

NARRATIVE: CASE EVENT DATE: 20140306
